FAERS Safety Report 13572360 (Version 1)
Quarter: 2017Q2

REPORT INFORMATION
  Report Type: Spontaneous
  Country: US (occurrence: US)
  Receive Date: 20170523
  Receipt Date: 20170523
  Transmission Date: 20170830
  Serious: Yes (Other)
  Sender: FDA-Public Use
  Company Number: US-JNJFOC-20170325058

PATIENT
  Age: 73 Year
  Sex: Male

DRUGS (8)
  1. IMBRUVICA [Suspect]
     Active Substance: IBRUTINIB
     Indication: CHRONIC LYMPHOCYTIC LEUKAEMIA
     Route: 048
     Dates: start: 20150930
  2. TRAMADOL. [Concomitant]
     Active Substance: TRAMADOL
     Indication: PAIN
     Route: 048
  3. PREDNISONE. [Concomitant]
     Active Substance: PREDNISONE
     Dates: end: 201511
  4. MULTIVITAMINS [Concomitant]
     Active Substance: VITAMINS
     Route: 048
  5. CALCIUM W/MAGNESIUM [Concomitant]
     Active Substance: CALCIUM\MAGNESIUM
     Route: 048
  6. DOCUSATE [Concomitant]
     Active Substance: DOCUSATE
     Route: 048
  7. AZITHROMYCIN ANHYDROUS. [Concomitant]
     Active Substance: AZITHROMYCIN ANHYDROUS
     Route: 048
  8. ASPIRIN. [Concomitant]
     Active Substance: ASPIRIN
     Route: 048

REACTIONS (17)
  - Radiation fibrosis - lung [Unknown]
  - Productive cough [Unknown]
  - Dyspepsia [Recovered/Resolved]
  - Hiatus hernia [Unknown]
  - Laboratory test abnormal [Not Recovered/Not Resolved]
  - Gastrooesophageal reflux disease [Unknown]
  - White blood cell count increased [Recovering/Resolving]
  - Osteolysis [Unknown]
  - Lymphadenopathy [Unknown]
  - Lung infiltration [Unknown]
  - Duodenitis [Unknown]
  - Inguinal hernia [Unknown]
  - Haemorrhoids [Unknown]
  - Gastritis [Unknown]
  - Platelet count decreased [Not Recovered/Not Resolved]
  - Non-small cell lung cancer [Unknown]
  - Abdominal distension [Recovered/Resolved]

NARRATIVE: CASE EVENT DATE: 201512
